FAERS Safety Report 15488570 (Version 1)
Quarter: 2018Q4

REPORT INFORMATION
  Report Type: Spontaneous
  Country: US (occurrence: US)
  Receive Date: 20181011
  Receipt Date: 20181011
  Transmission Date: 20190205
  Serious: No
  Sender: FDA-Public Use
  Company Number: US-PFIZER INC-2018406858

PATIENT
  Sex: Male

DRUGS (2)
  1. TIKOSYN [Suspect]
     Active Substance: DOFETILIDE
     Dosage: UNK
  2. PROPAFENONE. [Interacting]
     Active Substance: PROPAFENONE
     Dosage: UNK

REACTIONS (7)
  - Constipation [Unknown]
  - Memory impairment [Unknown]
  - Drug interaction [Unknown]
  - Drug ineffective [Unknown]
  - Back pain [Unknown]
  - Intentional product misuse [Unknown]
  - Headache [Unknown]
